FAERS Safety Report 8278342-1 (Version None)
Quarter: 2012Q2

REPORT INFORMATION
  Report Type: 
  Country: None (occurrence: None)
  Receive Date: 20120412
  Receipt Date: 20111018
  Transmission Date: 20120825
  Serious: Yes (Hospitalization)
  Sender: FDA-Public Use
  Company Number: US-ASTRAZENECA-2010SE38995

PATIENT
  Sex: Female

DRUGS (15)
  1. ALBUTEROL [Concomitant]
     Indication: COUGH
     Dosage: 90 MCG,2 PUFFS EVERY 4 TO 6 HOURS
     Route: 055
  2. NEXIUM [Suspect]
     Route: 048
  3. BENICAR HCT [Concomitant]
     Dosage: 40/25 MG, 1 TABLET,DAILY
     Route: 048
  4. PREDNISONE TAB [Concomitant]
     Dosage: 3 TABLET PER DAY FOR 2 DAYS,2 PER DAY FOR 2 DAYS,1 PER DAY FOR 2 DAYS
  5. ASPIRIN [Concomitant]
     Route: 048
  6. LISINOPRIL [Suspect]
     Route: 048
  7. DETROL [Concomitant]
     Route: 048
  8. FLEXERIL [Concomitant]
     Dosage: AS REQUIRED
  9. PATANOL [Concomitant]
     Dosage: 1 DROP, TWO TIMES A DAY
  10. CARAFATE [Concomitant]
     Route: 048
  11. NEXIUM [Suspect]
     Dosage: TWO TIMES A DAY
     Route: 048
  12. LORATADINE [Concomitant]
     Route: 048
  13. AZITHROMYCIN [Concomitant]
     Dosage: FOR 1 DAY
     Route: 048
  14. AZITHROMYCIN [Concomitant]
     Route: 048
  15. ANUSOL HC [Concomitant]
     Route: 054

REACTIONS (6)
  - STRESS [None]
  - COUGH [None]
  - DRUG HYPERSENSITIVITY [None]
  - HYPERTENSION [None]
  - GASTROOESOPHAGEAL REFLUX DISEASE [None]
  - INCORRECT DOSE ADMINISTERED [None]
